FAERS Safety Report 16815508 (Version 1)
Quarter: 2019Q3

REPORT INFORMATION
  Report Type: Spontaneous
  Country: US (occurrence: US)
  Receive Date: 20190916
  Receipt Date: 20190916
  Transmission Date: 20191005
  Serious: Yes (Life-Threatening, Hospitalization, Other)
  Sender: FDA-Public Use
  Company Number: None

PATIENT
  Age: 61 Year
  Sex: Male
  Weight: 111 kg

DRUGS (2)
  1. THC VAPING [Suspect]
     Active Substance: DEVICE\HERBALS
  2. THC VAPING [Suspect]
     Active Substance: DEVICE\HERBALS

REACTIONS (3)
  - Respiratory failure [None]
  - Traumatic lung injury [None]
  - Lung infiltration [None]

NARRATIVE: CASE EVENT DATE: 20190911
